FAERS Safety Report 12233852 (Version 2)
Quarter: 2016Q2

REPORT INFORMATION
  Report Type: Spontaneous
  Country: US (occurrence: US)
  Receive Date: 20160404
  Receipt Date: 20160407
  Transmission Date: 20160815
  Serious: Yes (Death, Hospitalization)
  Sender: FDA-Public Use
  Company Number: US-UNITED THERAPEUTICS-UNT-2016-004452

PATIENT
  Age: 51 Year
  Sex: Female
  Weight: 99.32 kg

DRUGS (2)
  1. AMLODIPINE [Concomitant]
     Active Substance: AMLODIPINE BESYLATE
     Indication: PRODUCT USED FOR UNKNOWN INDICATION
  2. REMODULIN [Suspect]
     Active Substance: TREPROSTINIL
     Indication: PULMONARY HYPERTENSION
     Dosage: 0.019 ?G/KG, CONTINUING
     Route: 041
     Dates: start: 20151125

REACTIONS (3)
  - Blood glucose decreased [Unknown]
  - Respiratory failure [Fatal]
  - Device related infection [Unknown]

NARRATIVE: CASE EVENT DATE: 201603
